FAERS Safety Report 8299319-6 (Version None)
Quarter: 2012Q2

REPORT INFORMATION
  Report Type: 
  Country: None (occurrence: None)
  Receive Date: 20120419
  Receipt Date: 20120410
  Transmission Date: 20120825
  Serious: Yes (Hospitalization, Other)
  Sender: FDA-Public Use
  Company Number: GB-ABBOTT-12P-167-0902219-00

PATIENT
  Sex: Male

DRUGS (2)
  1. HUMIRA [Suspect]
     Indication: PSORIATIC ARTHROPATHY
     Route: 058
  2. HUMIRA [Suspect]
     Dates: start: 20120406

REACTIONS (8)
  - ARTHRALGIA [None]
  - NERVE COMPRESSION [None]
  - PAIN IN EXTREMITY [None]
  - ARTHROPATHY [None]
  - INTERVERTEBRAL DISC PROTRUSION [None]
  - MUSCLE DISORDER [None]
  - ERYTHEMA [None]
  - GASTROENTERITIS NOROVIRUS [None]
